FAERS Safety Report 7022064-1 (Version None)
Quarter: 2010Q3

REPORT INFORMATION
  Report Type: 
  Country: None (occurrence: None)
  Receive Date: 20100928
  Receipt Date: 20100916
  Transmission Date: 20110219
  Serious: Yes (Other)
  Sender: FDA-Public Use
  Company Number: 2010MA002782

PATIENT
  Sex: Male

DRUGS (3)
  1. GABAPENTIN [Suspect]
     Indication: POST HERPETIC NEURALGIA
  2. AXSAIN [Concomitant]
  3. PREV MEDS [Concomitant]

REACTIONS (16)
  - ADVERSE EVENT [None]
  - APATHY [None]
  - ASTHENIA [None]
  - DECREASED INTEREST [None]
  - DEPRESSION [None]
  - FATIGUE [None]
  - FEELING ABNORMAL [None]
  - HYPOAESTHESIA FACIAL [None]
  - MALAISE [None]
  - MUSCLE TWITCHING [None]
  - NIGHT SWEATS [None]
  - PAIN [None]
  - PAIN IN EXTREMITY [None]
  - PARAESTHESIA [None]
  - SLEEP DISORDER [None]
  - WITHDRAWAL SYNDROME [None]
